FAERS Safety Report 5378774-5 (Version None)
Quarter: 2007Q3

REPORT INFORMATION
  Report Type: 
  Country: None (occurrence: None)
  Receive Date: 20070705
  Receipt Date: 20070629
  Transmission Date: 20080115
  Serious: Yes (Other)
  Sender: FDA-Public Use
  Company Number: D0053793A

PATIENT
  Age: 47 Year
  Sex: Female

DRUGS (1)
  1. AVANDAMET [Suspect]
     Route: 048
     Dates: start: 20020101

REACTIONS (2)
  - ANGINA PECTORIS [None]
  - MYOCARDIAL INFARCTION [None]
